FAERS Safety Report 11130826 (Version 1)
Quarter: 2015Q2

REPORT INFORMATION
  Report Type: Spontaneous
  Country: US (occurrence: US)
  Receive Date: 20150522
  Receipt Date: 20150522
  Transmission Date: 20150821
  Serious: Yes (Hospitalization, Other)
  Sender: FDA-Public Use
  Company Number: US-BAYER-2015-245652

PATIENT
  Age: 24 Year
  Sex: Female

DRUGS (2)
  1. DEPO-PROVERA [Suspect]
     Active Substance: MEDROXYPROGESTERONE ACETATE
     Dosage: UNK
     Route: 042
     Dates: start: 201412
  2. MIRENA [Suspect]
     Active Substance: LEVONORGESTREL
     Indication: CONTRACEPTION
     Dosage: UNK
     Route: 015
     Dates: start: 20150225, end: 20150225

REACTIONS (8)
  - Feeling guilty [None]
  - Abdominal pain lower [Unknown]
  - Depression [Unknown]
  - Abortion spontaneous [None]
  - Post-traumatic stress disorder [Unknown]
  - Genital haemorrhage [None]
  - Pregnancy with contraceptive device [Unknown]
  - Medication error [None]

NARRATIVE: CASE EVENT DATE: 20150225
